FAERS Safety Report 8612729-X (Version None)
Quarter: 2012Q3

REPORT INFORMATION
  Report Type: 
  Country: None (occurrence: None)
  Receive Date: 20120822
  Receipt Date: 20111013
  Transmission Date: 20120928
  Serious: Yes (Hospitalization)
  Sender: FDA-Public Use
  Company Number: US-ASTRAZENECA-2011SE50528

PATIENT
  Age: 46 Year
  Sex: Male

DRUGS (2)
  1. SYMBICORT [Suspect]
     Route: 055
  2. ALBUTEROL [Concomitant]

REACTIONS (3)
  - DYSPNOEA [None]
  - ADVERSE EVENT [None]
  - DRUG DOSE OMISSION [None]
